FAERS Safety Report 5654557-3 (Version None)
Quarter: 2008Q1

REPORT INFORMATION
  Report Type: 
  Country: None (occurrence: None)
  Receive Date: 20080307
  Receipt Date: 20080229
  Transmission Date: 20080703
  Serious: Yes (Other)
  Sender: FDA-Public Use
  Company Number: FR-BRISTOL-MYERS SQUIBB COMPANY-14053581

PATIENT
  Age: 66 Year
  Sex: Female

DRUGS (20)
  1. TAXOL [Suspect]
     Indication: LUNG NEOPLASM MALIGNANT
     Dosage: GIVEN ON 21-NOV-2007, 14-DEC-2007, AND 11-JAN-2008
     Route: 042
  2. TAXOL [Suspect]
     Indication: METASTASES TO BONE
     Dosage: GIVEN ON 21-NOV-2007, 14-DEC-2007, AND 11-JAN-2008
     Route: 042
  3. CARBOPLATIN [Suspect]
     Dosage: 700 MG, 600 MG, AND 500 MG DEPENDING ON COURSES. GIVEN ON 11-JAN-2008
     Route: 042
  4. ZOPHREN [Suspect]
     Dosage: GIVEN ON 11-JAN-2008
     Route: 042
     Dates: start: 20080111
  5. SOLU-MEDROL [Suspect]
     Route: 042
     Dates: start: 20071001
  6. PROFENID [Suspect]
     Route: 042
     Dates: start: 20071001
  7. COZAAR [Suspect]
     Route: 048
     Dates: start: 20071001, end: 20080117
  8. LEVOTHYROX [Suspect]
     Route: 048
     Dates: start: 20071001
  9. MORPHINE [Concomitant]
     Route: 042
  10. RANITIDINE HCL [Concomitant]
  11. DEXCHLORPHENIRAMINE [Concomitant]
  12. HYPNOVEL [Concomitant]
     Dates: start: 20071001
  13. PRIMPERAN INJ [Concomitant]
     Dates: start: 20071001
  14. NEXIUM [Concomitant]
     Dates: start: 20071001
  15. LOVENOX [Concomitant]
     Dates: start: 20071001
  16. ATHYMIL [Concomitant]
     Dates: start: 20071001
  17. STILNOX [Concomitant]
     Dates: start: 20071001
  18. DEBRIDAT [Concomitant]
     Dates: start: 20071001
  19. FORLAX [Concomitant]
     Dates: start: 20071001
  20. OSTRAM [Concomitant]
     Dates: start: 20071001

REACTIONS (3)
  - CHEST DISCOMFORT [None]
  - MYOCARDIAL ISCHAEMIA [None]
  - VENTRICULAR HYPOKINESIA [None]
